FAERS Safety Report 5424078-1 (Version None)
Quarter: 2007Q3

REPORT INFORMATION
  Report Type: 
  Country: None (occurrence: None)
  Receive Date: 20070823
  Receipt Date: 20070811
  Transmission Date: 20080115
  Serious: Yes (Hospitalization)
  Sender: FDA-Public Use
  Company Number: US-SHR-US-2007-025366

PATIENT
  Age: 52 Year
  Sex: Female
  Weight: 86 kg

DRUGS (10)
  1. BETASERON [Suspect]
     Indication: RELAPSING-REMITTING MULTIPLE SCLEROSIS
     Dosage: 10 MIU, EVERY 2D
     Route: 058
     Dates: start: 20070620, end: 20070621
  2. BETASERON [Suspect]
     Dosage: 2 MIU, EVERY 2D
     Route: 058
     Dates: start: 20070705
  3. BETASERON [Suspect]
     Dosage: 2 MIU, EVERY 2D
     Route: 058
     Dates: start: 20070811
  4. WARFARIN SODIUM [Concomitant]
     Indication: PROPHYLAXIS
     Dosage: 3 MG, 1X/DAY
  5. LOESTRIN [Concomitant]
     Dosage: 30 MG, 1X/DAY
  6. DYAZIDE [Concomitant]
     Dosage: 25 MG, 1X/DAY
  7. TRAZODONE HCL [Concomitant]
     Indication: DEPRESSION
     Dosage: 50 MG, 1X/DAY
  8. PROTONIX [Concomitant]
     Dosage: 40 MG, 1X/DAY
  9. CORTICOSTEROIDS [Concomitant]
     Dates: start: 20050401
  10. ALPRAZOLAM [Concomitant]
     Indication: ANXIETY
     Dosage: .25 MG, 3X/DAY

REACTIONS (4)
  - HEADACHE [None]
  - IRON DEFICIENCY ANAEMIA [None]
  - MENOMETRORRHAGIA [None]
  - MULTIPLE SCLEROSIS [None]
